FAERS Safety Report 9882932 (Version 2)
Quarter: 2014Q1

REPORT INFORMATION
  Report Type: Spontaneous
  Country: US (occurrence: US)
  Receive Date: 20140207
  Receipt Date: 20140207
  Transmission Date: 20141002
  Serious: Yes (Disabling)
  Sender: FDA-Public Use
  Company Number: US-GE HEALTHCARE MEDICAL DIAGNOSTICS-OSCN-PR-0908S-0412

PATIENT
  Sex: Male

DRUGS (11)
  1. OMNISCAN [Suspect]
     Indication: ACUTE HEPATIC FAILURE
     Route: 042
     Dates: start: 20050817, end: 20050817
  2. OMNISCAN [Suspect]
     Indication: CEREBROVASCULAR ACCIDENT
  3. VANCOMYCIN [Concomitant]
     Indication: PRODUCT USED FOR UNKNOWN INDICATION
     Route: 042
  4. VITAMIN K [Concomitant]
     Indication: PRODUCT USED FOR UNKNOWN INDICATION
  5. SOLUMEDROL [Concomitant]
     Indication: PRODUCT USED FOR UNKNOWN INDICATION
     Route: 042
  6. INSULIN [Concomitant]
     Indication: TYPE 2 DIABETES MELLITUS
  7. LACTULOSE [Concomitant]
     Indication: PRODUCT USED FOR UNKNOWN INDICATION
  8. MANNITOL [Concomitant]
     Indication: PRODUCT USED FOR UNKNOWN INDICATION
     Route: 042
  9. PROTONIX [Concomitant]
     Indication: PRODUCT USED FOR UNKNOWN INDICATION
     Route: 042
  10. PROPOFOL [Concomitant]
     Indication: PROPHYLAXIS
  11. PROPOFOL [Concomitant]
     Indication: INTRACRANIAL PRESSURE INCREASED

REACTIONS (1)
  - Nephrogenic systemic fibrosis [Not Recovered/Not Resolved]
